FAERS Safety Report 18986581 (Version 1)
Quarter: 2021Q1

REPORT INFORMATION
  Report Type: Spontaneous
  Country: US (occurrence: US)
  Receive Date: 20210308
  Receipt Date: 20210308
  Transmission Date: 20210420
  Serious: Yes (Hospitalization)
  Sender: FDA-Public Use
  Company Number: None

PATIENT
  Age: 76 Year
  Sex: Female

DRUGS (18)
  1. HUMALOG [Concomitant]
     Active Substance: INSULIN LISPRO
  2. CALCIUM [Concomitant]
     Active Substance: CALCIUM
  3. OPANA [Concomitant]
     Active Substance: OXYMORPHONE HYDROCHLORIDE
  4. UNREADABLE [Concomitant]
  5. MUCINEX [Concomitant]
     Active Substance: GUAIFENESIN
  6. PROGRAF [Concomitant]
     Active Substance: TACROLIMUS
  7. PRAVACHOL [Concomitant]
     Active Substance: PRAVASTATIN SODIUM
  8. PREDNISOLONE. [Concomitant]
     Active Substance: PREDNISOLONE
  9. CARAFATE [Concomitant]
     Active Substance: SUCRALFATE
  10. HYDROCO/APAP [Concomitant]
     Active Substance: ACETAMINOPHEN\HYDROCODONE
  11. POTASSIUM [Concomitant]
     Active Substance: POTASSIUM
  12. PROTONIX [Concomitant]
     Active Substance: PANTOPRAZOLE SODIUM
  13. AMBIEN [Concomitant]
     Active Substance: ZOLPIDEM TARTRATE
  14. LANTUS [Concomitant]
     Active Substance: INSULIN GLARGINE
  15. MAGNESIUM [Concomitant]
     Active Substance: MAGNESIUM
  16. REGIAN [Concomitant]
  17. TACROLIMUS, 1MG [Suspect]
     Active Substance: TACROLIMUS
     Route: 048
     Dates: start: 20181024
  18. OXYCONTIN [Concomitant]
     Active Substance: OXYCODONE HYDROCHLORIDE

REACTIONS (1)
  - Pneumonia [None]

NARRATIVE: CASE EVENT DATE: 20210215
